FAERS Safety Report 24605257 (Version 1)
Quarter: 2024Q4

REPORT INFORMATION
  Report Type: Spontaneous
  Country: FR (occurrence: FR)
  Receive Date: 20241111
  Receipt Date: 20241111
  Transmission Date: 20250114
  Serious: Yes (Hospitalization)
  Sender: MYLAN
  Company Number: None

PATIENT
  Age: 32 Year
  Sex: Female
  Weight: 55 kg

DRUGS (5)
  1. XANAX [Suspect]
     Active Substance: ALPRAZOLAM
     Indication: Product used for unknown indication
     Dosage: UNK (SCORED, PATIENT HAVING TAKEN A HANDFUL OF DRUGS AMONG HER USUAL TREATMENTS)
     Route: 048
     Dates: start: 20210102, end: 20210102
  2. ZOPICLONE [Suspect]
     Active Substance: ZOPICLONE
     Indication: Product used for unknown indication
     Dosage: UNK (PATIENT HAVING TAKEN A HANDFUL OF DRUGS AMONG HER USUAL TREATMENTS)
     Route: 048
     Dates: start: 20210102, end: 20210102
  3. IXPRIM [Suspect]
     Active Substance: ACETAMINOPHEN\TRAMADOL HYDROCHLORIDE
     Indication: Product used for unknown indication
     Dosage: UNK (PATIENT HAVING TAKEN A HANDFUL OF DRUGS AMONG HER USUAL TREATMENTS)
     Route: 048
     Dates: start: 20210102, end: 20210102
  4. ACETAMINOPHEN\CODEINE PHOSPHATE [Suspect]
     Active Substance: ACETAMINOPHEN\CODEINE PHOSPHATE
     Indication: Product used for unknown indication
     Dosage: UNK (PATIENT HAVING TAKEN A HANDFUL OF DRUGS AMONG HER USUAL TREATMENTS)
     Route: 048
     Dates: start: 20210102, end: 20210102
  5. BROMAZEPAM [Suspect]
     Active Substance: BROMAZEPAM
     Indication: Product used for unknown indication
     Dosage: UNK (QUADRISECTIBLE, PATIENT HAVING TAKEN A HANDFUL OF DRUGS AMONG HER USUAL TREATMENTS)
     Route: 048
     Dates: start: 20210102, end: 20210102

REACTIONS (4)
  - Asthmatic crisis [Recovered/Resolved]
  - Intentional overdose [Recovered/Resolved]
  - Erythema [Recovered/Resolved]
  - Anxiety [Recovered/Resolved]

NARRATIVE: CASE EVENT DATE: 20210102
